FAERS Safety Report 5615450-5 (Version None)
Quarter: 2008Q1

REPORT INFORMATION
  Report Type: 
  Country: None (occurrence: None)
  Receive Date: 20080206
  Receipt Date: 20080123
  Transmission Date: 20080703
  Serious: Yes (Other)
  Sender: FDA-Public Use
  Company Number: US-AMGEN-QUU262179

PATIENT
  Sex: Female

DRUGS (4)
  1. NEULASTA [Suspect]
     Indication: CHEMOTHERAPY
     Route: 058
     Dates: start: 20080115
  2. DOCETAXEL [Concomitant]
     Dates: start: 20080114
  3. DOXORUBICIN HYDROCHLORIDE [Concomitant]
     Dates: start: 20080114
  4. CYCLOPHOSPHAMIDE [Concomitant]
     Dates: start: 20080114

REACTIONS (1)
  - FEBRILE NEUTROPENIA [None]
